FAERS Safety Report 23731368 (Version 2)
Quarter: 2024Q2

REPORT INFORMATION
  Report Type: Other
  Country: BR (occurrence: BR)
  Receive Date: 20240411
  Receipt Date: 20240513
  Transmission Date: 20240715
  Serious: No
  Sender: FDA-Public Use
  Company Number: BR-TOLMAR, INC.-24BR047617

PATIENT
  Sex: Female

DRUGS (2)
  1. ELIGARD [Suspect]
     Active Substance: LEUPROLIDE ACETATE
     Indication: Precocious puberty
     Dosage: 45 MILLIGRAM, EVERY 20 WEEKS
     Dates: start: 202212
  2. ELIGARD [Suspect]
     Active Substance: LEUPROLIDE ACETATE
     Indication: Precocious puberty
     Dosage: UNK

REACTIONS (1)
  - Drug ineffective [Unknown]
